FAERS Safety Report 13278354 (Version 1)
Quarter: 2017Q1

REPORT INFORMATION
  Report Type: Spontaneous
  Country: JP (occurrence: JP)
  Receive Date: 20170228
  Receipt Date: 20170228
  Transmission Date: 20170428
  Serious: Yes (Death)
  Sender: FDA-Public Use
  Company Number: JP-ALLERGAN-1707156US

PATIENT
  Age: 93 Year
  Sex: Female
  Weight: 41 kg

DRUGS (5)
  1. MEMANTINE HCL - BP [Suspect]
     Active Substance: MEMANTINE
     Indication: DEMENTIA ALZHEIMER^S TYPE
     Dosage: 5 MG, QD
     Route: 048
     Dates: start: 20161229, end: 20170104
  2. EXELON [Suspect]
     Active Substance: RIVASTIGMINE TARTRATE
     Indication: DEMENTIA ALZHEIMER^S TYPE
     Dosage: 4.5 MG, UNK
     Route: 065
     Dates: start: 20161208, end: 20170127
  3. MEMANTINE HCL - BP [Suspect]
     Active Substance: MEMANTINE
     Dosage: 10 MG, QD
     Route: 048
     Dates: start: 20170105, end: 20170111
  4. MEMANTINE HCL - BP [Suspect]
     Active Substance: MEMANTINE
     Dosage: 20 MG, QD
     Route: 048
     Dates: start: 20170119, end: 20170127
  5. MEMANTINE HCL - BP [Suspect]
     Active Substance: MEMANTINE
     Dosage: 15 MG, QD
     Route: 048
     Dates: start: 20170112, end: 20170118

REACTIONS (2)
  - Pneumonia aspiration [Fatal]
  - Platelet count decreased [Not Recovered/Not Resolved]

NARRATIVE: CASE EVENT DATE: 20170105
